FAERS Safety Report 23998863 (Version 1)
Quarter: 2024Q2

REPORT INFORMATION
  Report Type: Spontaneous
  Country: US (occurrence: US)
  Receive Date: 20240621
  Receipt Date: 20240621
  Transmission Date: 20240716
  Serious: Yes (Other)
  Sender: FDA-Public Use
  Company Number: US-BRISTOL-MYERS SQUIBB COMPANY-2024-096035

PATIENT
  Age: 60 Year
  Sex: Male

DRUGS (2)
  1. ORENCIA [Suspect]
     Active Substance: ABATACEPT
     Indication: Psoriatic arthropathy
     Route: 058
     Dates: start: 202405
  2. ORENCIA [Suspect]
     Active Substance: ABATACEPT
     Indication: Ankylosing spondylitis

REACTIONS (9)
  - Fatigue [Unknown]
  - Constipation [Unknown]
  - Oedema [Unknown]
  - Swelling [Unknown]
  - Neuropathy peripheral [Unknown]
  - Pain [Unknown]
  - Erythema [Unknown]
  - Pruritus [Unknown]
  - Burning sensation [Unknown]

NARRATIVE: CASE EVENT DATE: 20240101
